FAERS Safety Report 21822083 (Version 1)
Quarter: 2023Q1

REPORT INFORMATION
  Report Type: Spontaneous
  Country: DE (occurrence: DE)
  Receive Date: 20230105
  Receipt Date: 20230105
  Transmission Date: 20230417
  Serious: Yes (Other)
  Sender: FDA-Public Use
  Company Number: None

PATIENT
  Age: 32 Year
  Sex: Male

DRUGS (6)
  1. RISPERIDONE [Suspect]
     Active Substance: RISPERIDONE
     Indication: Product used for unknown indication
     Dosage: 4 MG, QD (BAW)
     Route: 048
     Dates: start: 20220511
  2. PIPAMPERONE HYDROCHLORIDE [Suspect]
     Active Substance: PIPAMPERONE HYDROCHLORIDE
     Indication: Product used for unknown indication
     Dosage: 240 MG, QD
     Route: 048
     Dates: start: 20220502, end: 20220601
  3. FLUPENTIXOL [Suspect]
     Active Substance: FLUPENTIXOL
     Indication: Product used for unknown indication
     Dosage: 10 MG, QD
     Route: 048
     Dates: start: 20220511, end: 20220516
  4. FLUPENTIXOL [Suspect]
     Active Substance: FLUPENTIXOL
     Dosage: 20 MG, QD
     Route: 048
     Dates: start: 20220517, end: 20220521
  5. FLUPENTIXOL [Suspect]
     Active Substance: FLUPENTIXOL
     Dosage: 10 MG, QD
     Route: 048
     Dates: start: 20220522, end: 20220523
  6. LORAZEPAM [Concomitant]
     Active Substance: LORAZEPAM
     Indication: Product used for unknown indication
     Dosage: 4 MG, QD
     Route: 048
     Dates: start: 20220425, end: 20220608

REACTIONS (3)
  - Joint dislocation [Recovered/Resolved]
  - Pain in jaw [Recovered/Resolved]
  - Dyskinesia [Recovered/Resolved]

NARRATIVE: CASE EVENT DATE: 20220521
